FAERS Safety Report 16471324 (Version 4)
Quarter: 2019Q3

REPORT INFORMATION
  Report Type: Report from Study
  Country: US (occurrence: US)
  Receive Date: 20190624
  Receipt Date: 20190726
  Transmission Date: 20191004
  Serious: Yes (Hospitalization, Other)
  Sender: FDA-Public Use
  Company Number: US-TETRAPHASE PHARMACEUTICALS, INC.-2019TP000108

PATIENT
  Age: 15 Year
  Sex: Male
  Weight: 59 kg

DRUGS (27)
  1. MORPHINE [Concomitant]
     Active Substance: MORPHINE
     Indication: PAIN
     Route: 042
     Dates: start: 20190605, end: 20190605
  2. HEPARIN FLUSH [Concomitant]
     Active Substance: HEPARIN SODIUM
     Route: 042
     Dates: start: 20190605, end: 20190605
  3. 0.9% SALINE [Concomitant]
     Indication: PROPHYLAXIS
     Dosage: 0.9 %
     Route: 042
     Dates: start: 20190602, end: 20190611
  4. FUROSEMIDE. [Concomitant]
     Active Substance: FUROSEMIDE
     Indication: PULMONARY OEDEMA
     Route: 042
     Dates: start: 20190605, end: 20190605
  5. POTASSIUM CHLORIDE. [Concomitant]
     Active Substance: POTASSIUM CHLORIDE
     Route: 042
     Dates: start: 20190604
  6. ONDASETRON [Concomitant]
     Active Substance: ONDANSETRON
     Indication: NAUSEA
     Route: 042
     Dates: start: 20190604, end: 20190607
  7. CEFAZOLIN [Concomitant]
     Active Substance: CEFAZOLIN
     Indication: PROPHYLAXIS
     Route: 042
     Dates: start: 20190604, end: 20190606
  8. WARFARIN [Concomitant]
     Active Substance: WARFARIN
     Route: 048
     Dates: start: 20190607, end: 20190607
  9. FAMOTIDINE. [Concomitant]
     Active Substance: FAMOTIDINE
     Indication: PROPHYLAXIS AGAINST GASTROINTESTINAL ULCER
     Route: 042
     Dates: start: 20190604, end: 20190607
  10. ACETAMINOPHEN. [Concomitant]
     Active Substance: ACETAMINOPHEN
  11. HEPARIN [Concomitant]
     Active Substance: HEPARIN SODIUM
     Indication: THROMBOSIS PROPHYLAXIS
     Dosage: 20 UNITS/KG/HR
     Route: 041
     Dates: start: 20190605, end: 20190611
  12. XERAVA [Suspect]
     Active Substance: ERAVACYCLINE DIHYDROCHLORIDE
     Indication: BACTERIAL INFECTION
     Route: 042
     Dates: start: 20190606, end: 20190606
  13. DOCUSATE SODIUM. [Concomitant]
     Active Substance: DOCUSATE SODIUM
     Indication: CONSTIPATION
     Route: 048
     Dates: start: 20190606, end: 20190610
  14. ONDASETRON [Concomitant]
     Active Substance: ONDANSETRON
     Indication: VOMITING
  15. ACETAMINOPHEN. [Concomitant]
     Active Substance: ACETAMINOPHEN
     Indication: PAIN
     Route: 048
     Dates: start: 20190606, end: 20190606
  16. HYDROCODONE-ACETAMINOPHEN [Concomitant]
     Active Substance: ACETAMINOPHEN\HYDROCODONE
  17. LIDOCAINE. [Concomitant]
     Active Substance: LIDOCAINE
     Indication: ANAESTHESIA
     Route: 037
     Dates: start: 20190604, end: 20190607
  18. LISINOPRIL. [Concomitant]
     Active Substance: LISINOPRIL
     Indication: HYPERTENSION
     Route: 048
     Dates: start: 20190606
  19. PAROXETINE. [Concomitant]
     Active Substance: PAROXETINE
     Indication: ADJUSTMENT DISORDER
     Route: 048
     Dates: start: 20190605
  20. NALBUPHINE [Concomitant]
     Active Substance: NALBUPHINE
     Route: 042
     Dates: start: 20190605, end: 20190610
  21. WARFARIN [Concomitant]
     Active Substance: WARFARIN
     Indication: THROMBOSIS PROPHYLAXIS
     Route: 048
     Dates: start: 20190606, end: 20190606
  22. HEPARIN FLUSH [Concomitant]
     Active Substance: HEPARIN SODIUM
     Indication: THROMBOSIS PROPHYLAXIS
     Route: 042
     Dates: start: 20190605, end: 20190611
  23. FUROSEMIDE. [Concomitant]
     Active Substance: FUROSEMIDE
     Indication: OEDEMA
     Route: 048
     Dates: start: 20190606, end: 20190607
  24. HYDROCODONE-ACETAMINOPHEN [Concomitant]
     Active Substance: ACETAMINOPHEN\HYDROCODONE
     Indication: PAIN
     Dosage: 7.5-325 MILLIGRAM
     Route: 048
     Dates: start: 20190605, end: 20190607
  25. MAGNESIUM SULFATE. [Concomitant]
     Active Substance: MAGNESIUM SULFATE
     Indication: HYPOMAGNESAEMIA
     Route: 042
     Dates: start: 20190606, end: 20190606
  26. AMINOPHYLLINE. [Concomitant]
     Active Substance: AMINOPHYLLINE
     Indication: SURGERY
     Route: 042
     Dates: start: 20190605, end: 20190606
  27. NORMAL SALINE [Concomitant]
     Active Substance: SODIUM CHLORIDE
     Route: 042
     Dates: start: 20190606, end: 20190606

REACTIONS (1)
  - Pleural effusion [Recovered/Resolved]

NARRATIVE: CASE EVENT DATE: 20190607
